FAERS Safety Report 9366193 (Version 1)
Quarter: 2013Q2

REPORT INFORMATION
  Report Type: Not Available
  Country: FR (occurrence: FR)
  Receive Date: 20130625
  Receipt Date: 20130625
  Transmission Date: 20140414
  Serious: Yes (Hospitalization)
  Sender: FDA-Public Use
  Company Number: FR-ASTELLAS-2013EU005212

PATIENT
  Age: 61 Year
  Sex: Male

DRUGS (6)
  1. PROGRAF [Suspect]
     Dosage: 2 MG, UNKNOWN/D
     Route: 065
     Dates: start: 201206, end: 20130317
  2. LAMIVUDINE [Suspect]
     Dosage: UNK
     Route: 065
     Dates: start: 201206, end: 20130320
  3. GANCICLOVIR [Concomitant]
     Dosage: UNK
     Route: 065
  4. INEXIUM                            /01479302/ [Concomitant]
     Dosage: 20 MG, UNKNOWN/D
  5. KARDEGIC [Concomitant]
     Dosage: UNK
     Route: 065
  6. LYRICA [Concomitant]
     Dosage: UNK
     Route: 065

REACTIONS (1)
  - Renal tubular disorder [Recovered/Resolved]
